FAERS Safety Report 4678856-7 (Version None)
Quarter: 2005Q2

REPORT INFORMATION
  Report Type: 
  Country: None (occurrence: None)
  Receive Date: 20050531
  Receipt Date: 20050520
  Transmission Date: 20051028
  Serious: Yes (Life-Threatening, Other)
  Sender: FDA-Public Use
  Company Number: 2005077589

PATIENT
  Age: 45 Year
  Sex: Male
  Weight: 107.5025 kg

DRUGS (1)
  1. LIPITOR [Suspect]
     Indication: BLOOD CHOLESTEROL INCREASED
     Dosage: ORAL
     Route: 048
     Dates: start: 20050101

REACTIONS (6)
  - CARDIAC PROCEDURE COMPLICATION [None]
  - CARDIO-RESPIRATORY ARREST [None]
  - DISEASE RECURRENCE [None]
  - MYOCARDIAL INFARCTION [None]
  - STENT OCCLUSION [None]
  - TREATMENT NONCOMPLIANCE [None]
